FAERS Safety Report 9492152 (Version 1)
Quarter: 2013Q3

REPORT INFORMATION
  Report Type: Spontaneous
  Country: US (occurrence: US)
  Receive Date: 20130830
  Receipt Date: 20130830
  Transmission Date: 20140515
  Serious: Yes (Other)
  Sender: FDA-Public Use
  Company Number: US-009507513-1308USA012311

PATIENT
  Age: 26 Year
  Sex: Female
  Weight: 117.46 kg

DRUGS (1)
  1. NEXPLANON [Suspect]
     Dosage: UNK
     Route: 059
     Dates: start: 20120907

REACTIONS (6)
  - Laparoscopic surgery [Unknown]
  - Weight increased [Not Recovered/Not Resolved]
  - Device breakage [Not Recovered/Not Resolved]
  - Device kink [Not Recovered/Not Resolved]
  - Product quality issue [Unknown]
  - Therapeutic response unexpected [Unknown]
